FAERS Safety Report 19907391 (Version 1)
Quarter: 2021Q3

REPORT INFORMATION
  Report Type: Spontaneous
  Country: JP (occurrence: JP)
  Receive Date: 20210930
  Receipt Date: 20210930
  Transmission Date: 20211014
  Serious: Yes (Other)
  Sender: FDA-Public Use
  Company Number: JP-PFM-2021-09626

PATIENT

DRUGS (1)
  1. HEMANGIOL [Suspect]
     Active Substance: PROPRANOLOL HYDROCHLORIDE
     Indication: INFANTILE HAEMANGIOMA
     Dosage: 1?3 MG/KG/DAY
     Route: 048

REACTIONS (3)
  - Cardiac dysfunction [Unknown]
  - Product prescribing error [Unknown]
  - Pulmonary congestion [Unknown]
